FAERS Safety Report 19212921 (Version 1)
Quarter: 2021Q2

REPORT INFORMATION
  Report Type: Spontaneous
  Country: FR (occurrence: FR)
  Receive Date: 20210504
  Receipt Date: 20210504
  Transmission Date: 20210717
  Serious: Yes (Other)
  Sender: FDA-Public Use
  Company Number: NVSC2021FR092599

PATIENT
  Age: 73 Year
  Sex: Female

DRUGS (2)
  1. RIMACTAN [Suspect]
     Active Substance: RIFAMPIN
     Indication: DEVICE RELATED INFECTION
     Dosage: UNK
     Route: 048
     Dates: start: 20210318, end: 20210401
  2. XYDALBA [Suspect]
     Active Substance: DALBAVANCIN HYDROCHLORIDE
     Indication: DEVICE RELATED INFECTION
     Dosage: UNK (ON 06 APR 2021 TRATMENT WITH XYDALBA WAS STOPPED)
     Route: 042
     Dates: start: 20210315

REACTIONS (5)
  - Rash papular [Recovered/Resolved]
  - Hepatic cytolysis [Recovered/Resolved]
  - Rash erythematous [Recovered/Resolved]
  - Hyperthermia [Recovered/Resolved]
  - Eosinophilia [Recovered/Resolved]

NARRATIVE: CASE EVENT DATE: 20210330
